FAERS Safety Report 12434259 (Version 1)
Quarter: 2016Q2

REPORT INFORMATION
  Report Type: Spontaneous
  Country: US (occurrence: US)
  Receive Date: 20160603
  Receipt Date: 20160603
  Transmission Date: 20160815
  Serious: No
  Sender: FDA-Public Use
  Company Number: US-009507513-1605USA012686

PATIENT
  Age: 23 Year
  Sex: Female
  Weight: 48.98 kg

DRUGS (3)
  1. TURMERIC [Concomitant]
     Active Substance: TURMERIC
  2. TRIAMCINOLONE [Concomitant]
     Active Substance: TRIAMCINOLONE
  3. NEXPLANON [Suspect]
     Active Substance: ETONOGESTREL
     Indication: CONTRACEPTION
     Dosage: 68 MG, UNK
     Route: 059
     Dates: start: 20160303

REACTIONS (2)
  - Wound [Unknown]
  - Implant site irritation [Unknown]

NARRATIVE: CASE EVENT DATE: 201604
